FAERS Safety Report 7862993-X (Version None)
Quarter: 2011Q4

REPORT INFORMATION
  Report Type: 
  Country: None (occurrence: None)
  Receive Date: 20111027
  Receipt Date: 20101123
  Transmission Date: 20120403
  Serious: No
  Sender: FDA-Public Use
  Company Number: US-AMGEN-USASP2010006080

PATIENT
  Sex: Female

DRUGS (5)
  1. HYDROCODONE BITARTRATE AND ACETAMINOPHEN [Concomitant]
  2. AMITRIPTYLINE HCL [Concomitant]
     Dosage: 100 MG, UNK
  3. SULFASALAZINE GF [Concomitant]
     Dosage: 500 MG, UNK
  4. ENBREL [Suspect]
     Indication: PRODUCT USED FOR UNKNOWN INDICATION
     Dosage: 50 MG, QWK
  5. PLAQUENIL [Concomitant]
     Dosage: 200 UNK, UNK

REACTIONS (1)
  - BREAST TENDERNESS [None]
